FAERS Safety Report 8839532 (Version 2)
Quarter: 2012Q4

REPORT INFORMATION
  Report Type: 
  Country: JP (occurrence: JP)
  Receive Date: 20121015
  Receipt Date: 20121026
  Transmission Date: 20130627
  Serious: Yes (Hospitalization)
  Sender: FDA-Public Use
  Company Number: PHHY2012JP090503

PATIENT
  Age: 56 Year
  Sex: Female

DRUGS (2)
  1. FAMVIR [Suspect]
     Indication: HERPES ZOSTER
     Dosage: 500 mg, QD (daily)
     Route: 048
     Dates: start: 20121009, end: 20121009
  2. LYRICA [Suspect]
     Indication: HERPES ZOSTER
     Dosage: 150 mg, QD (daily)
     Route: 048
     Dates: start: 20121009, end: 20121009

REACTIONS (3)
  - Depressed level of consciousness [Recovering/Resolving]
  - Dizziness [Recovering/Resolving]
  - Nausea [Recovering/Resolving]
